FAERS Safety Report 7969392-0 (Version None)
Quarter: 2011Q4

REPORT INFORMATION
  Report Type: 
  Country: None (occurrence: None)
  Receive Date: 20111211
  Receipt Date: 20040303
  Transmission Date: 20120403
  Serious: Yes (Hospitalization)
  Sender: FDA-Public Use
  Company Number: PHEH2004US02259

PATIENT
  Sex: Male

DRUGS (4)
  1. LIPITOR [Concomitant]
     Dates: start: 20020919
  2. CYCLOPHOSPHAMIDE [Suspect]
     Indication: RENAL TRANSPLANT
     Dosage: 275 MG, QD
     Route: 048
     Dates: start: 20011017
  3. PREDNISONE [Suspect]
     Dates: start: 20011017
  4. MYCOPHENOLATE MOFETIL (CELLCEPT) [Suspect]
     Dates: start: 20011017

REACTIONS (7)
  - CORONARY ARTERY DISEASE [None]
  - VOMITING [None]
  - CORONARY ARTERY OCCLUSION [None]
  - MYOCARDIAL INFARCTION [None]
  - NAUSEA [None]
  - DIABETIC KETOACIDOSIS [None]
  - DIZZINESS [None]
